FAERS Safety Report 25605404 (Version 1)
Quarter: 2025Q3

REPORT INFORMATION
  Report Type: Spontaneous
  Country: US (occurrence: None)
  Receive Date: 20250724
  Receipt Date: 20250724
  Transmission Date: 20251020
  Serious: Yes (Hospitalization)
  Sender: FDA-CTU
  Company Number: None

PATIENT
  Sex: Male

DRUGS (3)
  1. RINVOQ [Suspect]
     Active Substance: UPADACITINIB
     Indication: Dermatitis atopic
     Dosage: FREQUENCY : DAILY;?
     Route: 048
     Dates: start: 20241009
  2. HYDROCORT OIN [Concomitant]
  3. OPZELURA CRE [Concomitant]

REACTIONS (5)
  - Herpes zoster [None]
  - Asthma [None]
  - Impaired quality of life [None]
  - Therapy interrupted [None]
  - Sleep disorder [None]
